FAERS Safety Report 7434575-5 (Version None)
Quarter: 2011Q2

REPORT INFORMATION
  Report Type: 
  Country: None (occurrence: None)
  Receive Date: 20110425
  Receipt Date: 20110420
  Transmission Date: 20111010
  Serious: No
  Sender: FDA-Public Use
  Company Number: US-B.I. PHARMACEUTICALS,INC./RIDGEFIELD-2011-BP-11334BP

PATIENT
  Sex: Male

DRUGS (4)
  1. ACCUPRIL [Concomitant]
     Indication: HYPERTENSION
     Route: 048
  2. MEDICATION NOT FURTHER SPECIFIED [Concomitant]
     Indication: MITRAL VALVE DISEASE
  3. PRADAXA [Suspect]
     Indication: ATRIAL FIBRILLATION
     Route: 048
     Dates: start: 20110310
  4. LOPRESSOR [Concomitant]
     Indication: HYPERTENSION
     Route: 048

REACTIONS (2)
  - DYSGEUSIA [None]
  - SENSATION OF FOREIGN BODY [None]
